FAERS Safety Report 6912868-5 (Version None)
Quarter: 2010Q3

REPORT INFORMATION
  Report Type: 
  Country: None (occurrence: None)
  Receive Date: 20100806
  Receipt Date: 20090219
  Transmission Date: 20110219
  Serious: No
  Sender: FDA-Public Use
  Company Number: US-PFIZER INC-2008152123

PATIENT
  Sex: Male
  Weight: 111 kg

DRUGS (2)
  1. GLIPIZIDE [Suspect]
     Indication: BLOOD GLUCOSE ABNORMAL
     Dosage: 5 MG, 3X/DAY
  2. ANTIHYPERTENSIVES [Concomitant]
     Dosage: UNK

REACTIONS (1)
  - BLOOD GLUCOSE INCREASED [None]
